FAERS Safety Report 19961716 (Version 1)
Quarter: 2021Q4

REPORT INFORMATION
  Report Type: Spontaneous
  Country: GB (occurrence: GB)
  Receive Date: 20211018
  Receipt Date: 20211018
  Transmission Date: 20220304
  Serious: Yes (Other)
  Sender: FDA-Public Use
  Company Number: GB-MHRA-EYC 00262307

PATIENT
  Age: 24 Year
  Sex: Female
  Weight: 85 kg

DRUGS (3)
  1. PAROXETINE [Suspect]
     Active Substance: PAROXETINE
     Indication: Ill-defined disorder
     Dosage: 20 MILLIGRAM, ONCE A DAY
     Route: 048
     Dates: start: 20210914
  2. PROPRANOLOL [Suspect]
     Active Substance: PROPRANOLOL HYDROCHLORIDE
     Indication: Ill-defined disorder
     Dosage: 40 MILLIGRAM, ONCE A DAY
     Route: 048
     Dates: start: 20210914
  3. DESOGESTREL [Concomitant]
     Active Substance: DESOGESTREL
     Indication: Ill-defined disorder
     Dosage: UNK
     Route: 065

REACTIONS (2)
  - Nausea [Not Recovered/Not Resolved]
  - Medication error [Unknown]

NARRATIVE: CASE EVENT DATE: 20210914
